FAERS Safety Report 6315001-6 (Version None)
Quarter: 2009Q3

REPORT INFORMATION
  Report Type: 
  Country: None (occurrence: None)
  Receive Date: 20090819
  Receipt Date: 20090814
  Transmission Date: 20100115
  Serious: Yes (Hospitalization)
  Sender: FDA-Public Use
  Company Number: D0062649A

PATIENT
  Sex: Female

DRUGS (5)
  1. LAMOTRIGINE [Suspect]
     Indication: MENTAL DISORDER
     Dosage: 7900MG PER DAY
     Route: 048
     Dates: start: 20090811, end: 20090811
  2. CIPRAMIL [Suspect]
     Route: 048
     Dates: start: 20090811, end: 20090811
  3. ESCITALOPRAM OXALATE [Suspect]
     Dosage: 500MG PER DAY
     Route: 048
     Dates: start: 20090811, end: 20090811
  4. ZOLPIDEM [Suspect]
     Dosage: 200MG PER DAY
     Route: 048
     Dates: start: 20090811, end: 20090811
  5. MELPERON [Suspect]
     Dosage: 2200MG PER DAY
     Route: 048
     Dates: start: 20090811, end: 20090811

REACTIONS (5)
  - ALTERED STATE OF CONSCIOUSNESS [None]
  - INTENTIONAL OVERDOSE [None]
  - MULTIPLE DRUG OVERDOSE INTENTIONAL [None]
  - NYSTAGMUS [None]
  - SUICIDE ATTEMPT [None]
